FAERS Safety Report 8305866-0 (Version None)
Quarter: 2012Q2

REPORT INFORMATION
  Report Type: 
  Country: None (occurrence: None)
  Receive Date: 20120423
  Receipt Date: 20120413
  Transmission Date: 20120825
  Serious: Yes (Other)
  Sender: FDA-Public Use
  Company Number: PT-FRI-1000029027

PATIENT
  Sex: Female

DRUGS (4)
  1. MEMANTINE HCL [Suspect]
     Dosage: 20 MG
     Route: 048
     Dates: start: 20050801, end: 20110501
  2. MEMANTINE HCL [Suspect]
     Dosage: 5 MG
     Route: 048
     Dates: start: 20110601, end: 20110601
  3. NODEPE [Suspect]
     Dosage: 20 MG
     Route: 048
  4. FUROSEMIDE [Suspect]
     Dosage: 40 MG
     Route: 048

REACTIONS (1)
  - HEPATITIS [None]
